FAERS Safety Report 6979497-9 (Version None)
Quarter: 2010Q3

REPORT INFORMATION
  Report Type: 
  Country: None (occurrence: None)
  Receive Date: 20100913
  Receipt Date: 20100906
  Transmission Date: 20110219
  Serious: Yes (Other)
  Sender: FDA-Public Use
  Company Number: DE-ABBOTT-10P-062-0648867-00

PATIENT
  Sex: Female
  Weight: 120 kg

DRUGS (5)
  1. HUMIRA [Suspect]
     Indication: CROHN'S DISEASE
     Route: 058
     Dates: start: 20091120, end: 20100601
  2. HUMIRA [Suspect]
     Route: 058
     Dates: start: 20100901
  3. BUDECORT [Concomitant]
     Indication: SEASONAL ALLERGY
  4. ANALGETICS [Concomitant]
     Indication: PAIN
  5. CORTISONE ACETATE [Concomitant]
     Indication: CROHN'S DISEASE
     Dosage: 2 TABLETS, DAILY

REACTIONS (4)
  - BENIGN INTRACRANIAL HYPERTENSION [None]
  - TRIGEMINAL NERVE DISORDER [None]
  - VISUAL IMPAIRMENT [None]
  - VOMITING [None]
